FAERS Safety Report 6054676-6 (Version None)
Quarter: 2009Q1

REPORT INFORMATION
  Report Type: 
  Country: None (occurrence: None)
  Receive Date: 20090128
  Receipt Date: 20090120
  Transmission Date: 20090719
  Serious: Yes (Other)
  Sender: FDA-Public Use
  Company Number: GB-RANBAXY-2009RR-21054

PATIENT
  Age: 43 Year
  Sex: Male
  Weight: 100 kg

DRUGS (3)
  1. ACETAMINOPHEN [Suspect]
     Indication: INTENTIONAL OVERDOSE
     Dosage: 5 G, UNK
     Route: 048
     Dates: start: 20080217, end: 20080217
  2. SYMBICORT [Suspect]
     Indication: ASTHMA
     Dosage: UNK
     Route: 055
  3. ALCOHOL [Concomitant]

REACTIONS (1)
  - OVERDOSE [None]
